FAERS Safety Report 5664151-6 (Version None)
Quarter: 2008Q1

REPORT INFORMATION
  Report Type: 
  Country: None (occurrence: None)
  Receive Date: 20080314
  Receipt Date: 20080314
  Transmission Date: 20080703
  Serious: Yes (Life-Threatening, Hospitalization)
  Sender: FDA-Public Use
  Company Number: None

PATIENT
  Age: 76 Year
  Sex: Male
  Weight: 95.2554 kg

DRUGS (17)
  1. HEPARIN LOCK-FLUSH [Suspect]
     Indication: INDWELLING CATHETER MANAGEMENT
     Dosage: 1000 UNITS, 500 UNITS/HR DURING DIALYSIS
     Dates: start: 20070703, end: 20070726
  2. ENOXAPARIN SODIUM [Suspect]
     Indication: ANTICOAGULANT THERAPY
     Dosage: 80 MG SUBCUT DAILY
     Route: 058
     Dates: start: 20070705, end: 20070726
  3. LINEZOLID [Concomitant]
  4. FLAGYL [Concomitant]
  5. CIPRO [Concomitant]
  6. FORTAZ [Concomitant]
  7. TOBRAMYCIN [Concomitant]
  8. DIGOXIN [Concomitant]
  9. REGULAR INSULIN [Concomitant]
  10. ACTIVASE [Concomitant]
  11. MORPHINE [Concomitant]
  12. NEOSYNEPHRINE [Concomitant]
  13. ALBUMIN (HUMAN) [Concomitant]
  14. DOPAMINE HCL [Concomitant]
  15. ZOFRAN [Concomitant]
  16. VALIUM [Concomitant]
  17. LEVOPHED [Concomitant]

REACTIONS (1)
  - HEPARIN-INDUCED THROMBOCYTOPENIA [None]
